FAERS Safety Report 21784323 (Version 6)
Quarter: 2023Q1

REPORT INFORMATION
  Report Type: Spontaneous
  Country: FR (occurrence: FR)
  Receive Date: 20221227
  Receipt Date: 20230220
  Transmission Date: 20230417
  Serious: Yes (Other)
  Sender: FDA-Public Use
  Company Number: FR-SANOFI-01402707

PATIENT
  Age: 73 Year
  Sex: Male

DRUGS (3)
  1. CLOBAZAM [Suspect]
     Active Substance: CLOBAZAM
     Indication: Dyspepsia
     Dosage: 30 MG, QD
     Route: 065
     Dates: start: 1982, end: 202206
  2. CLOBAZAM [Suspect]
     Active Substance: CLOBAZAM
     Indication: Pancreatitis
     Dosage: 20 MG, QD
     Route: 065
  3. TIAPRIDE HYDROCHLORIDE [Concomitant]
     Active Substance: TIAPRIDE HYDROCHLORIDE
     Indication: Product used for unknown indication
     Dosage: UNK
     Route: 065

REACTIONS (12)
  - Dementia Alzheimer^s type [Recovered/Resolved]
  - Parkinson^s disease [Recovered/Resolved]
  - Drug abuse [Unknown]
  - Foot deformity [Not Recovered/Not Resolved]
  - Knee deformity [Not Recovered/Not Resolved]
  - Hypokinesia [Not Recovered/Not Resolved]
  - Libido disorder [Unknown]
  - Muscle disorder [Unknown]
  - Arthropathy [Unknown]
  - Diplopia [Recovered/Resolved]
  - Product use in unapproved indication [Unknown]
  - Nervous system disorder [Recovered/Resolved]
